FAERS Safety Report 20758758 (Version 3)
Quarter: 2022Q2

REPORT INFORMATION
  Report Type: Spontaneous
  Country: US (occurrence: US)
  Receive Date: 20220427
  Receipt Date: 20220618
  Transmission Date: 20220721
  Serious: No
  Sender: FDA-Public Use
  Company Number: US-BRISTOL-MYERS SQUIBB COMPANY-2022-020710

PATIENT
  Age: 73 Year
  Sex: Female
  Weight: 91.17 kg

DRUGS (1)
  1. REVLIMID [Suspect]
     Active Substance: LENALIDOMIDE
     Indication: Plasma cell myeloma
     Dosage: 21 DAY OF 28 DAY CYCLE
     Route: 048

REACTIONS (6)
  - Hypoaesthesia [Unknown]
  - Gait disturbance [Unknown]
  - Mobility decreased [Unknown]
  - Peripheral coldness [Unknown]
  - Bradykinesia [Unknown]
  - Intraocular pressure increased [Unknown]
